FAERS Safety Report 7414580-5 (Version None)
Quarter: 2011Q2

REPORT INFORMATION
  Report Type: 
  Country: None (occurrence: None)
  Receive Date: 20110414
  Receipt Date: 20110408
  Transmission Date: 20111010
  Serious: Yes (Death, Hospitalization, Other)
  Sender: FDA-Public Use
  Company Number: US-BRISTOL-MYERS SQUIBB COMPANY-15400070

PATIENT
  Age: 69 Year
  Sex: Male
  Weight: 74 kg

DRUGS (18)
  1. ASPIRIN [Concomitant]
  2. PEMETREXED DISODIUM [Suspect]
     Indication: NON-SMALL CELL LUNG CANCER
     Route: 042
     Dates: start: 20101020, end: 20101020
  3. LORATADINE [Concomitant]
     Indication: HYPERSENSITIVITY
     Dosage: ONGOING
     Dates: start: 20100714
  4. SIMVASTATIN [Concomitant]
     Indication: BLOOD CHOLESTEROL
     Route: 048
  5. DOCUSATE [Concomitant]
  6. ALBUTEROL [Concomitant]
  7. AMIODARONE [Concomitant]
  8. MORPHINE [Concomitant]
  9. METOPROLOL TARTRATE [Concomitant]
     Indication: BLOOD PRESSURE
     Route: 048
  10. FOLIC ACID [Concomitant]
     Indication: PROPHYLAXIS
     Dates: start: 20101118
  11. VITAMIN B-12 [Concomitant]
     Indication: PROPHYLAXIS
     Dates: start: 20101118
  12. MOXIFLOXACIN [Concomitant]
  13. PROCHLORPERAZINE TAB [Concomitant]
     Indication: VOMITING
     Dosage: ONGOING
     Dates: start: 20101020
  14. LORAZEPAM [Concomitant]
  15. SENNOSIDE A+B [Concomitant]
  16. CARBOPLATIN [Suspect]
     Indication: NON-SMALL CELL LUNG CANCER
     Dosage: 1 DF=6DF AUC
     Route: 042
     Dates: start: 20101020, end: 20101020
  17. PROCHLORPERAZINE TAB [Concomitant]
     Indication: NAUSEA
     Dosage: ONGOING
     Dates: start: 20101020
  18. OMEPRAZOLE [Concomitant]
     Indication: GASTROOESOPHAGEAL REFLUX DISEASE
     Dosage: ONGOING
     Dates: start: 20100716

REACTIONS (6)
  - HAEMOPTYSIS [None]
  - NEOPLASM MALIGNANT [None]
  - SUPRAVENTRICULAR TACHYCARDIA [None]
  - CHEST PAIN [None]
  - PLEURAL EFFUSION [None]
  - ACTIVATED PARTIAL THROMBOPLASTIN TIME PROLONGED [None]
